FAERS Safety Report 6186556-X (Version None)
Quarter: 2009Q2

REPORT INFORMATION
  Report Type: 
  Country: None (occurrence: None)
  Receive Date: 20090512
  Receipt Date: 20090507
  Transmission Date: 20091009
  Serious: Yes (Death, Hospitalization, Other)
  Sender: FDA-Public Use
  Company Number: PHHY2009JP07950

PATIENT
  Age: 63 Year
  Sex: Male

DRUGS (5)
  1. TASIGNA [Suspect]
     Indication: CHRONIC MYELOID LEUKAEMIA
     Dosage: 400 MG, QD
     Route: 048
     Dates: start: 20090227, end: 20090301
  2. TASIGNA [Suspect]
     Dosage: 400 MG, UNK
     Route: 048
     Dates: start: 20090309
  3. TASIGNA [Suspect]
     Dosage: 800 MG, UNK
     Route: 048
     Dates: end: 20090503
  4. AMLODIPINE [Concomitant]
     Route: 048
  5. BLOPRESS [Concomitant]
     Route: 048

REACTIONS (7)
  - ANOREXIA [None]
  - ASCITES [None]
  - CARDIAC FAILURE [None]
  - CARDIAC TAMPONADE [None]
  - ELECTROCARDIOGRAM QT PROLONGED [None]
  - PERICARDIAL EFFUSION [None]
  - SHOCK [None]
